FAERS Safety Report 6436561-0 (Version None)
Quarter: 2009Q4

REPORT INFORMATION
  Report Type: 
  Country: None (occurrence: None)
  Receive Date: 20091111
  Receipt Date: 20091106
  Transmission Date: 20100525
  Serious: Yes (Death)
  Sender: FDA-Public Use
  Company Number: US-CELGENEUS-163-21880-09101954

PATIENT
  Sex: Male

DRUGS (3)
  1. REVLIMID [Suspect]
     Route: 048
     Dates: start: 20061001, end: 20071001
  2. REVLIMID [Suspect]
     Route: 048
     Dates: start: 20060401
  3. REVLIMID [Suspect]
     Route: 048
     Dates: start: 20060701

REACTIONS (1)
  - NEOPLASM PROGRESSION [None]
